FAERS Safety Report 21680639 (Version 1)
Quarter: 2022Q4

REPORT INFORMATION
  Report Type: Spontaneous
  Country: SE (occurrence: SE)
  Receive Date: 20221205
  Receipt Date: 20221205
  Transmission Date: 20230113
  Serious: Yes (Other)
  Sender: FDA-Public Use
  Company Number: SE-002147023-NVSC2022SE278392

PATIENT
  Sex: Male

DRUGS (1)
  1. ATORVASTATIN CALCIUM TRIHYDRATE [Suspect]
     Active Substance: ATORVASTATIN CALCIUM TRIHYDRATE
     Indication: Lipids increased
     Dosage: UNK
     Route: 065

REACTIONS (2)
  - Necrotising myositis [Unknown]
  - Fibromyalgia [Unknown]
